FAERS Safety Report 16362929 (Version 1)
Quarter: 2019Q2

REPORT INFORMATION
  Report Type: Spontaneous
  Country: HU (occurrence: HU)
  Receive Date: 20190528
  Receipt Date: 20190528
  Transmission Date: 20190711
  Serious: Yes (Other)
  Sender: FDA-Public Use
  Company Number: PHHY2019HU117575

PATIENT
  Age: 24 Year
  Sex: Female

DRUGS (3)
  1. CARBOPLATIN. [Suspect]
     Active Substance: CARBOPLATIN
     Indication: DISEASE PROGRESSION
     Dosage: UNK
     Route: 065
  2. ETOPOSIDE. [Suspect]
     Active Substance: ETOPOSIDE
     Indication: DISEASE PROGRESSION
     Dosage: UNK
     Route: 065
  3. IFOSFAMIDE. [Suspect]
     Active Substance: IFOSFAMIDE
     Indication: DISEASE PROGRESSION
     Dosage: UNK
     Route: 065

REACTIONS (2)
  - Drug intolerance [Unknown]
  - Bone marrow failure [Recovered/Resolved]

NARRATIVE: CASE EVENT DATE: 201001
